FAERS Safety Report 21027888 (Version 3)
Quarter: 2022Q3

REPORT INFORMATION
  Report Type: Spontaneous
  Country: TW (occurrence: TW)
  Receive Date: 20220630
  Receipt Date: 20220823
  Transmission Date: 20221027
  Serious: Yes (Other)
  Sender: FDA-Public Use
  Company Number: TW-BAYER-2022A087470

PATIENT
  Age: 24 Year
  Weight: 59 kg

DRUGS (1)
  1. JIVI [Suspect]
     Active Substance: DAMOCTOCOG ALFA PEGOL
     Indication: Prophylaxis
     Dosage: 59.3 IU/KG, ONCE, TOTALLY INFUSIONS 47
     Route: 042
     Dates: start: 202102

REACTIONS (1)
  - Haemorrhage [None]
